FAERS Safety Report 14127102 (Version 1)
Quarter: 2017Q4

REPORT INFORMATION
  Report Type: Spontaneous
  Country: US (occurrence: US)
  Receive Date: 20171026
  Receipt Date: 20171026
  Transmission Date: 20180321
  Serious: Yes (Other)
  Sender: FDA-Public Use
  Company Number: US-AUROBINDO-AUR-APL-2017-42581

PATIENT
  Age: 19 Year
  Sex: Male

DRUGS (1)
  1. LOPERAMIDE [Suspect]
     Active Substance: LOPERAMIDE
     Indication: PRODUCT USED FOR UNKNOWN INDICATION
     Dosage: UNK
     Route: 065

REACTIONS (8)
  - Coma [Unknown]
  - Cytopenia [Unknown]
  - Hypotension [Unknown]
  - Acidosis [Unknown]
  - Rhabdomyolysis [Unknown]
  - Tachycardia [Unknown]
  - Drug abuse [Unknown]
  - Coagulopathy [Unknown]
